FAERS Safety Report 18984751 (Version 1)
Quarter: 2021Q1

REPORT INFORMATION
  Report Type: Other
  Country: SK (occurrence: SK)
  Receive Date: 20210308
  Receipt Date: 20210308
  Transmission Date: 20210420
  Serious: Yes (Hospitalization, Other)
  Sender: FDA-Public Use
  Company Number: SK-CELLTRION INC.-2021SK002685

PATIENT

DRUGS (2)
  1. INFLIXIMAB (UNKNOWN) [Suspect]
     Active Substance: INFLIXIMAB
     Indication: CROHN^S DISEASE
     Dosage: 5 MG/KG, EVERY 8 WEEKS
     Route: 042
     Dates: start: 201509, end: 2016
  2. 5?ASA [Concomitant]
     Active Substance: MESALAMINE
     Dosage: 2?4 GTT
     Route: 048
     Dates: start: 201512

REACTIONS (7)
  - Suicidal ideation [Recovered/Resolved]
  - Sarcopenia [Unknown]
  - Crohn^s disease [Not Recovered/Not Resolved]
  - Thrombosis [Unknown]
  - Malnutrition [Recovered/Resolved with Sequelae]
  - Depression [Unknown]
  - Infection [Unknown]

NARRATIVE: CASE EVENT DATE: 201510
